FAERS Safety Report 17797765 (Version 2)
Quarter: 2020Q2

REPORT INFORMATION
  Report Type: Spontaneous
  Country: US (occurrence: US)
  Receive Date: 20200518
  Receipt Date: 20200625
  Transmission Date: 20200714
  Serious: Yes (Hospitalization, Other)
  Sender: FDA-Public Use
  Company Number: US-ROCHE-2602069

PATIENT
  Age: 64 Year
  Sex: Male
  Weight: 100.6 kg

DRUGS (1)
  1. OCREVUS [Suspect]
     Active Substance: OCRELIZUMAB
     Indication: PROGRESSIVE MULTIPLE SCLEROSIS
     Route: 042
     Dates: start: 201709

REACTIONS (6)
  - Fracture [Unknown]
  - Urinary tract infection [Unknown]
  - Road traffic accident [Unknown]
  - COVID-19 [Unknown]
  - Paraparesis [Unknown]
  - Chronic kidney disease [Unknown]

NARRATIVE: CASE EVENT DATE: 202002
